FAERS Safety Report 23842789 (Version 1)
Quarter: 2024Q2

REPORT INFORMATION
  Report Type: Spontaneous
  Country: IE (occurrence: IE)
  Receive Date: 20240510
  Receipt Date: 20240510
  Transmission Date: 20240715
  Serious: Yes (Hospitalization)
  Sender: FDA-Public Use
  Company Number: IE-BAXTER-2024BAX017614

PATIENT
  Age: 9 Month
  Sex: Male

DRUGS (1)
  1. TISSEEL [Suspect]
     Active Substance: FIBRINOGEN HUMAN\THROMBIN HUMAN
     Indication: Cleft palate repair
     Dosage: 2 ML OF 4 ML SYRINGE USED  (ON TO PALATE)
     Route: 061
     Dates: start: 20240425, end: 20240425

REACTIONS (5)
  - Obstructive airways disorder [Recovered/Resolved]
  - Product physical issue [Unknown]
  - COVID-19 [Unknown]
  - Respiratory symptom [Unknown]
  - Hypersensitivity [Unknown]

NARRATIVE: CASE EVENT DATE: 20240425
